FAERS Safety Report 8590989-1 (Version None)
Quarter: 2012Q3

REPORT INFORMATION
  Report Type: 
  Country: None (occurrence: None)
  Receive Date: 20120813
  Receipt Date: 20120803
  Transmission Date: 20120928
  Serious: No
  Sender: FDA-Public Use
  Company Number: US-009507513-1208USA003027

PATIENT

DRUGS (3)
  1. PEG-INTRON [Suspect]
     Dosage: 120 MICROGRAM, QW
     Route: 058
     Dates: start: 20120719
  2. RIBASPHERE [Suspect]
     Dosage: UNK
     Dates: start: 20120719
  3. VICTRELIS [Suspect]
     Indication: HEPATITIS C
     Dosage: 800 MG/TID
     Route: 048

REACTIONS (3)
  - SLEEP DISORDER [None]
  - NAUSEA [None]
  - HEADACHE [None]
